FAERS Safety Report 5893508-3 (Version None)
Quarter: 2008Q3

REPORT INFORMATION
  Report Type: 
  Country: None (occurrence: None)
  Receive Date: 20080919
  Receipt Date: 20080904
  Transmission Date: 20090109
  Serious: Yes (Other)
  Sender: FDA-Public Use
  Company Number: DSJ-2008-08721

PATIENT
  Age: 65 Year
  Sex: Male
  Weight: 54.8 kg

DRUGS (17)
  1. OLMESARTAN MEDOXOMIL [Suspect]
     Indication: HYPERTENSION
     Dosage: 20 MG, PER ORAL
     Route: 048
     Dates: start: 20080610
  2. GLUCOBAY [Suspect]
     Dosage: 300 MG (100 MG, 3 IN 1 D), PER ORAL
     Route: 048
     Dates: start: 20070207
  3. NOVORAPID 30MIX (INSULIN ASPART) (INJECTION) (INSULIN ASPART) [Suspect]
     Dosage: SEE IMAGE
     Route: 058
     Dates: start: 20061004, end: 20061227
  4. NOVORAPID 30MIX (INSULIN ASPART) (INJECTION) (INSULIN ASPART) [Suspect]
     Dosage: SEE IMAGE
     Route: 058
     Dates: start: 20061227, end: 20071024
  5. NOVORAPID 30MIX (INSULIN ASPART) (INJECTION) (INSULIN ASPART) [Suspect]
     Dosage: SEE IMAGE
     Route: 058
     Dates: start: 20071024, end: 20080521
  6. NOVORAPID 30MIX (INSULIN ASPART) (INJECTION) (INSULIN ASPART) [Suspect]
     Dosage: SEE IMAGE
     Route: 058
     Dates: start: 20080521, end: 20080709
  7. NOVORAPID 30MIX (INSULIN ASPART) (INJECTION) (INSULIN ASPART) [Suspect]
     Dosage: SEE IMAGE
     Route: 058
     Dates: start: 20080709, end: 20080723
  8. NOVORAPID 30MIX (INSULIN ASPART) (INJECTION) (INSULIN ASPART) [Suspect]
     Dosage: SEE IMAGE
     Route: 058
     Dates: start: 20080723, end: 20080806
  9. NOVORAPID 30MIX (INSULIN ASPART) (INJECTION) (INSULIN ASPART) [Suspect]
     Dosage: SEE IMAGE
     Route: 058
     Dates: start: 20080806
  10. NORVASC [Concomitant]
  11. ACETYLSALICYLIC ACID SRT [Concomitant]
  12. PLAVIX (CLOPIDOGREL SULFATE) (TABLET) (CLOPIDOGREL SULFATE) [Concomitant]
  13. KINEDAK (EPALRESTAT) (TABLET) (EPALRESTAT) [Concomitant]
  14. PRAVASTAN (PRAVASTATIN SODIUM) (TABLET) (PRAVASTATIN SODIUM) [Concomitant]
  15. OPALMON (LIMAPROST) (TABLET) (LIMAPROST) [Concomitant]
  16. JUVELA N (TOCOPHERYL NICOTINATE) (CAPSULE) (TOCOPHERYL NICOTINATE) [Concomitant]
  17. PENFILL 30R (INSULIN HUMAN) (INSULIN HUMAN) [Concomitant]

REACTIONS (4)
  - BLOOD GLUCOSE INCREASED [None]
  - HYPOGLYCAEMIA [None]
  - NO THERAPEUTIC RESPONSE [None]
  - OVERDOSE [None]
